FAERS Safety Report 20237053 (Version 1)
Quarter: 2021Q4

REPORT INFORMATION
  Report Type: Spontaneous
  Country: US (occurrence: US)
  Receive Date: 20211228
  Receipt Date: 20211228
  Transmission Date: 20220304
  Serious: Yes (Death)
  Sender: FDA-Public Use
  Company Number: US-BAUSCH-BL-2021-042370

PATIENT
  Age: 45 Year
  Sex: Male

DRUGS (2)
  1. CHLORDIAZEPOXIDE [Suspect]
     Active Substance: CHLORDIAZEPOXIDE
     Indication: Product used for unknown indication
     Route: 065
  2. ALCOHOL [Suspect]
     Active Substance: ALCOHOL
     Indication: Product used for unknown indication
     Route: 065

REACTIONS (1)
  - Drug abuse [Fatal]
